FAERS Safety Report 7727340-2 (Version None)
Quarter: 2011Q3

REPORT INFORMATION
  Report Type: 
  Country: None (occurrence: None)
  Receive Date: 20110902
  Receipt Date: 20110826
  Transmission Date: 20111222
  Serious: Yes (Hospitalization, Other)
  Sender: FDA-Public Use
  Company Number: US-ABBOTT-11P-163-0850543-00

PATIENT
  Age: 53 Year
  Sex: Female

DRUGS (6)
  1. HUMIRA [Suspect]
     Indication: PSORIATIC ARTHROPATHY
     Dates: end: 20080501
  2. CLARINEX [Concomitant]
     Indication: HYPERSENSITIVITY
     Dates: start: 20090101
  3. HUMIRA [Suspect]
     Dates: start: 20081101, end: 20110201
  4. FLORASTOR [Concomitant]
     Indication: DISBACTERIOSIS
     Dates: start: 20110812
  5. UNKNOWN MEDICATION [Concomitant]
     Indication: HYPERSENSITIVITY
     Dates: end: 20090101
  6. VITAMIN A [Concomitant]
     Indication: PRODUCT USED FOR UNKNOWN INDICATION

REACTIONS (10)
  - DEVICE DISLOCATION [None]
  - MOBILITY DECREASED [None]
  - SPINAL OPERATION [None]
  - IMPAIRED HEALING [None]
  - DYSPEPSIA [None]
  - ARTHRITIS [None]
  - WOUND DEHISCENCE [None]
  - SPINAL ROD REMOVAL [None]
  - PYREXIA [None]
  - WOUND SECRETION [None]
